FAERS Safety Report 17584946 (Version 1)
Quarter: 2020Q1

REPORT INFORMATION
  Report Type: Spontaneous
  Country: US (occurrence: US)
  Receive Date: 20200325
  Receipt Date: 20200325
  Transmission Date: 20200409
  Serious: Yes (Other)
  Sender: FDA-Public Use
  Company Number: None

PATIENT
  Age: 65 Year
  Sex: Male
  Weight: 129.15 kg

DRUGS (11)
  1. SYNTHROID [Concomitant]
     Active Substance: LEVOTHYROXINE SODIUM
  2. MULTIVITAMIN [Concomitant]
     Active Substance: VITAMINS
  3. DILTIAZEM XR 240MG CAPSULE [Suspect]
     Active Substance: DILTIAZEM
     Indication: HYPERTROPHIC CARDIOMYOPATHY
     Route: 048
     Dates: start: 20200228
  4. XARELTO [Concomitant]
     Active Substance: RIVAROXABAN
  5. FISH OIL [Concomitant]
     Active Substance: FISH OIL
  6. DILTIAZEM XR 240MG CAPSULE [Suspect]
     Active Substance: DILTIAZEM
     Indication: BLOOD PRESSURE MEASUREMENT
     Route: 048
     Dates: start: 20200228
  7. DILTIAZEM XR 240MG CAPSULE [Suspect]
     Active Substance: DILTIAZEM
     Indication: ATRIAL FIBRILLATION
     Route: 048
     Dates: start: 20200228
  8. ENTRESTO [Concomitant]
     Active Substance: SACUBITRIL\VALSARTAN
  9. PROZAC [Concomitant]
     Active Substance: FLUOXETINE HYDROCHLORIDE
  10. ALBUTEROL ASTHMA INHALER [Concomitant]
  11. GARLIC. [Concomitant]
     Active Substance: GARLIC

REACTIONS (7)
  - Nightmare [None]
  - Amnesia [None]
  - Therapy change [None]
  - Irritability [None]
  - Agitation [None]
  - Personality change [None]
  - Depression [None]

NARRATIVE: CASE EVENT DATE: 20200325
